FAERS Safety Report 4698164-8 (Version None)
Quarter: 2005Q2

REPORT INFORMATION
  Report Type: 
  Country: None (occurrence: None)
  Receive Date: 20050623
  Receipt Date: 20050406
  Transmission Date: 20051028
  Serious: Yes (Death, Hospitalization)
  Sender: FDA-Public Use
  Company Number: DE-GLAXOSMITHKLINE-B0377070A

PATIENT
  Age: 60 Year
  Sex: Female
  Weight: 62 kg

DRUGS (3)
  1. TOPOTECAN [Suspect]
     Indication: SMALL CELL LUNG CANCER STAGE UNSPECIFIED
     Dosage: 1.22MG PER DAY
     Route: 042
     Dates: start: 20050311, end: 20050315
  2. CISPLATIN [Suspect]
     Indication: SMALL CELL LUNG CANCER STAGE UNSPECIFIED
     Dosage: 75MGM2 PER DAY
     Route: 042
     Dates: start: 20050315, end: 20050315
  3. METOCLOPRAMIDE HYDROCHLORIDE [Concomitant]
     Indication: PROPHYLAXIS
     Dosage: 20MG PER DAY
     Route: 042
     Dates: start: 20050218

REACTIONS (13)
  - BLOOD GLUCOSE INCREASED [None]
  - BRONCHIAL OBSTRUCTION [None]
  - DYSPNOEA EXACERBATED [None]
  - HAEMATOCRIT DECREASED [None]
  - HAEMOGLOBIN DECREASED [None]
  - LUNG NEOPLASM MALIGNANT [None]
  - LYMPHANGIOSIS CARCINOMATOSA [None]
  - MALIGNANT NEOPLASM PROGRESSION [None]
  - PNEUMONIA [None]
  - PYREXIA [None]
  - RED BLOOD CELL COUNT DECREASED [None]
  - SMALL CELL LUNG CANCER STAGE UNSPECIFIED [None]
  - WHITE BLOOD CELL COUNT DECREASED [None]
